FAERS Safety Report 8901560 (Version 1)
Quarter: 2012Q4

REPORT INFORMATION
  Report Type: 
  Country: US (occurrence: US)
  Receive Date: 20121108
  Receipt Date: 20121108
  Transmission Date: 20130627
  Serious: Yes (Death)
  Sender: FDA-Public Use
  Company Number: US-TEVA-363544USA

PATIENT
  Sex: Male

DRUGS (4)
  1. ACTIQ [Suspect]
     Route: 002
  2. OXYCODONE [Concomitant]
  3. LORTAB [Concomitant]
  4. ROXANOL [Concomitant]

REACTIONS (1)
  - Death [Fatal]
